FAERS Safety Report 4415075-3 (Version None)
Quarter: 2004Q3

REPORT INFORMATION
  Report Type: 
  Country: None (occurrence: None)
  Receive Date: 20040804
  Receipt Date: 20040729
  Transmission Date: 20050211
  Serious: Yes (Other)
  Sender: FDA-Public Use
  Company Number: 200415763US

PATIENT
  Sex: Male

DRUGS (1)
  1. CLOMID [Suspect]
     Indication: SPERM COUNT DECREASED
     Route: 048
     Dates: start: 20030501, end: 20040301

REACTIONS (1)
  - LYMPHOMA [None]
